FAERS Safety Report 15561655 (Version 1)
Quarter: 2018Q4

REPORT INFORMATION
  Report Type: Spontaneous
  Country: AU (occurrence: AU)
  Receive Date: 20181029
  Receipt Date: 20181029
  Transmission Date: 20190205
  Serious: Yes (Other)
  Sender: FDA-Public Use
  Company Number: AU-GLAXOSMITHKLINE-AU2018GSK195380

PATIENT
  Sex: Male

DRUGS (1)
  1. TAFENOQUINE [Suspect]
     Active Substance: TAFENOQUINE
     Indication: MALARIA PROPHYLAXIS
     Dosage: UNK

REACTIONS (10)
  - Seizure [Unknown]
  - Paranoia [Unknown]
  - Depression [Unknown]
  - Sleep disorder [Unknown]
  - Memory impairment [Unknown]
  - Anxiety [Unknown]
  - Nightmare [Unknown]
  - Aggression [Unknown]
  - Mental disorder [Unknown]
  - Rapid eye movements sleep abnormal [Unknown]
